FAERS Safety Report 15367713 (Version 1)
Quarter: 2018Q3

REPORT INFORMATION
  Report Type: Spontaneous
  Country: US (occurrence: US)
  Receive Date: 20180904
  Receipt Date: 20180904
  Transmission Date: 20181010
  Serious: Yes (Hospitalization)
  Sender: FDA-Public Use
  Company Number: None

PATIENT
  Age: 34 Year
  Sex: Male

DRUGS (15)
  1. CEFEPIME [Concomitant]
     Active Substance: CEFEPIME HYDROCHLORIDE
  2. FLUCONAZOLE. [Concomitant]
     Active Substance: FLUCONAZOLE
  3. GABAPENTIN. [Concomitant]
     Active Substance: GABAPENTIN
  4. ESCITALOPRAM [Concomitant]
     Active Substance: ESCITALOPRAM OXALATE
  5. FLUDARABINE [Concomitant]
     Active Substance: FLUDARABINE PHOSPHATE
  6. DRONABINOL. [Concomitant]
     Active Substance: DRONABINOL
  7. LEVOFLOXACIN. [Concomitant]
     Active Substance: LEVOFLOXACIN
  8. YESCARTA [Suspect]
     Active Substance: AXICABTAGENE CILOLEUCEL
     Indication: DIFFUSE LARGE B-CELL LYMPHOMA
     Dates: start: 20180430
  9. ACYCLOVIR. [Concomitant]
     Active Substance: ACYCLOVIR
  10. LEVETIRACETAM. [Concomitant]
     Active Substance: LEVETIRACETAM
  11. BACTRIM [Concomitant]
     Active Substance: SULFAMETHOXAZOLE\TRIMETHOPRIM
  12. ALLOPURINOL. [Concomitant]
     Active Substance: ALLOPURINOL
  13. PEMBROLIZUMAB. [Concomitant]
     Active Substance: PEMBROLIZUMAB
  14. CYTOXAN [Concomitant]
     Active Substance: CYCLOPHOSPHAMIDE
  15. METHADONE [Concomitant]
     Active Substance: METHADONE HYDROCHLORIDE

REACTIONS (18)
  - Hypotension [None]
  - Speech disorder [None]
  - Vomiting [None]
  - Pancytopenia [None]
  - Neurotoxicity [None]
  - Loss of personal independence in daily activities [None]
  - Communication disorder [None]
  - Headache [None]
  - Cytokine release syndrome [None]
  - Neurological symptom [None]
  - Febrile neutropenia [None]
  - Delirium [None]
  - Vision blurred [None]
  - Visual tracking test abnormal [None]
  - Tangentiality [None]
  - Somnolence [None]
  - Enuresis [None]
  - Nausea [None]
